FAERS Safety Report 4689125-3 (Version None)
Quarter: 2005Q2

REPORT INFORMATION
  Report Type: 
  Country: None (occurrence: None)
  Receive Date: 20050613
  Receipt Date: 20050602
  Transmission Date: 20051028
  Serious: Yes (Hospitalization)
  Sender: FDA-Public Use
  Company Number: 2005CG01042

PATIENT
  Age: 97 Year
  Sex: Male
  Weight: 65 kg

DRUGS (11)
  1. OMEPRAZOLE [Suspect]
     Route: 048
  2. CORDARONE [Interacting]
     Indication: ATRIAL FIBRILLATION
     Route: 048
  3. CORDARONE [Interacting]
     Indication: ATRIAL FLUTTER
     Route: 048
  4. CORTANCYL [Interacting]
     Indication: POLYARTERITIS NODOSA
     Route: 048
     Dates: start: 20050201
  5. COUMADIN [Interacting]
     Route: 048
     Dates: end: 20050321
  6. COUMADIN [Interacting]
     Route: 048
     Dates: start: 20050325, end: 20050329
  7. OFLOCET [Interacting]
     Indication: URINARY TRACT INFECTION
     Route: 048
     Dates: start: 20050310, end: 20050321
  8. OFLOCET [Interacting]
     Route: 048
     Dates: start: 20050321, end: 20050322
  9. CACIT D3 [Concomitant]
     Route: 048
     Dates: start: 20050201, end: 20050321
  10. LASIX [Concomitant]
  11. LEXOMIL [Concomitant]

REACTIONS (8)
  - ANAEMIA [None]
  - DIVERTICULUM INTESTINAL [None]
  - DRUG INTERACTION [None]
  - HAEMATURIA [None]
  - INTERNATIONAL NORMALISED RATIO INCREASED [None]
  - LOWER GASTROINTESTINAL HAEMORRHAGE [None]
  - RECTAL HAEMORRHAGE [None]
  - URINARY TRACT INFECTION [None]
